FAERS Safety Report 18043658 (Version 1)
Quarter: 2020Q3

REPORT INFORMATION
  Report Type: Spontaneous
  Country: US (occurrence: US)
  Receive Date: 20200718
  Receipt Date: 20200718
  Transmission Date: 20201103
  Serious: Yes (Other)
  Sender: FDA-Public Use
  Company Number: None

PATIENT
  Age: 61 Year
  Sex: Female
  Weight: 63 kg

DRUGS (9)
  1. CQ?10 [Concomitant]
  2. THYROFEM [Concomitant]
  3. VITAMIN D [Concomitant]
     Active Substance: VITAMIN D NOS
  4. VITAMIN C [Concomitant]
     Active Substance: ASCORBIC ACID
  5. LAROSE KILLS GERMS HAND SANITIZER (BENZALKONIUM CHLORIDE) [Suspect]
     Active Substance: BENZALKONIUM CHLORIDE
     Indication: COVID-19 PROPHYLAXIS
     Dosage: ?          QUANTITY:2 OUNCE(S);?
     Route: 061
     Dates: start: 20200501, end: 20200717
  6. XALANTAN + ALPHAGAN P GLAUCOMA EYEDROPS [Concomitant]
  7. CALCIUM + VITAMIN D [Concomitant]
     Active Substance: CALCIUM\VITAMIN D
  8. IRON [Concomitant]
     Active Substance: IRON
  9. MULTIVITAMIN MINERAL FOR WOMEN [Concomitant]

REACTIONS (2)
  - Skin exfoliation [None]
  - Dry skin [None]

NARRATIVE: CASE EVENT DATE: 20200714
